FAERS Safety Report 7927984-9 (Version None)
Quarter: 2011Q4

REPORT INFORMATION
  Report Type: 
  Country: None (occurrence: None)
  Receive Date: 20111118
  Receipt Date: 20111114
  Transmission Date: 20120403
  Serious: No
  Sender: FDA-Public Use
  Company Number: US-JNJFOC-20110502336

PATIENT
  Sex: Female
  Weight: 63.5 kg

DRUGS (1)
  1. CYCLOBENZAPRINE HYDROCHLORIDE [Suspect]
     Indication: PAIN
     Route: 048
     Dates: start: 19670101, end: 20101201

REACTIONS (1)
  - DRUG INEFFECTIVE [None]
